FAERS Safety Report 20187530 (Version 1)
Quarter: 2021Q4

REPORT INFORMATION
  Report Type: Spontaneous
  Country: US (occurrence: US)
  Receive Date: 20211215
  Receipt Date: 20211215
  Transmission Date: 20220303
  Serious: Yes (Death, Hospitalization, Other)
  Sender: FDA-Public Use
  Company Number: US-GLAXOSMITHKLINE-2006111767

PATIENT
  Age: 49 Year
  Sex: Male

DRUGS (2)
  1. IBUPROFEN [Suspect]
     Active Substance: IBUPROFEN
     Indication: Suicide attempt
     Dosage: UNK
     Route: 048
     Dates: start: 2005, end: 2005
  2. VALPROIC ACID [Suspect]
     Active Substance: VALPROIC ACID
     Indication: Suicide attempt
     Dosage: UNK
     Route: 048
     Dates: start: 2005, end: 2005

REACTIONS (5)
  - Completed suicide [Fatal]
  - Intentional overdose [Fatal]
  - Upper gastrointestinal haemorrhage [Fatal]
  - Ammonia increased [Fatal]
  - Blood pH increased [Fatal]

NARRATIVE: CASE EVENT DATE: 20050101
